FAERS Safety Report 24589354 (Version 1)
Quarter: 2024Q4

REPORT INFORMATION
  Report Type: Spontaneous
  Country: US (occurrence: None)
  Receive Date: 20241106
  Receipt Date: 20241106
  Transmission Date: 20250114
  Serious: Yes (Hospitalization)
  Sender: Public
  Company Number: None

PATIENT
  Age: 74 Year
  Sex: Male

DRUGS (1)
  1. DABIGATRAN ETEXILATE [Suspect]
     Active Substance: DABIGATRAN ETEXILATE
     Indication: Atrial fibrillation
     Dates: start: 20220912, end: 20240823

REACTIONS (5)
  - Haematochezia [None]
  - Haemorrhoids [None]
  - Diverticulum intestinal [None]
  - Haemorrhoids [None]
  - Haemorrhage [None]

NARRATIVE: CASE EVENT DATE: 20240611
